FAERS Safety Report 17258263 (Version 6)
Quarter: 2021Q1

REPORT INFORMATION
  Report Type: Spontaneous
  Country: US (occurrence: US)
  Receive Date: 20200110
  Receipt Date: 20210302
  Transmission Date: 20210419
  Serious: Yes (Hospitalization, Other)
  Sender: FDA-Public Use
  Company Number: US-PFIZER INC-2020009441

PATIENT
  Age: 67 Year
  Sex: Male
  Weight: 92.97 kg

DRUGS (12)
  1. OMEPRAZOLE. [Concomitant]
     Active Substance: OMEPRAZOLE
     Dosage: 40 MG, 2X/DAY
  2. PRAVASTATIN. [Concomitant]
     Active Substance: PRAVASTATIN
     Dosage: 80 MG, 1X/DAY, [BEDTIME]
  3. VYNDAQEL [Suspect]
     Active Substance: TAFAMIDIS MEGLUMINE
     Indication: AMYLOIDOSIS
     Dosage: 80 MG, 1X/DAY
     Dates: start: 20190919
  4. VYNDAQEL [Suspect]
     Active Substance: TAFAMIDIS MEGLUMINE
     Indication: AMYLOIDOSIS
  5. ELIQUIS [Concomitant]
     Active Substance: APIXABAN
     Dosage: 5 MG, 2X/DAY
     Dates: start: 2019
  6. SILDENAFIL. [Concomitant]
     Active Substance: SILDENAFIL
     Dosage: 20 MG, 3X/DAY
  7. DOXAZOCIN [Concomitant]
     Active Substance: DOXAZOSIN MESYLATE
     Dosage: 4 MG, DAILY
  8. SPIRONOLACTONE. [Concomitant]
     Active Substance: SPIRONOLACTONE
     Dosage: 25 MG, DAILY
  9. TORSEMIDE. [Concomitant]
     Active Substance: TORSEMIDE
     Dosage: 50 MG, DAILY
  10. DOFETILIDE. [Concomitant]
     Active Substance: DOFETILIDE
     Dosage: 125 UG, 2X/DAY
  11. GLIPIZIDE. [Concomitant]
     Active Substance: GLIPIZIDE
     Dosage: 5 MG, DAILY
  12. LEVOTHYROXINE. [Concomitant]
     Active Substance: LEVOTHYROXINE
     Dosage: 75 UG, DAILY

REACTIONS (12)
  - Hypoaesthesia [Unknown]
  - Cardiac failure acute [Unknown]
  - Scrotal swelling [Recovered/Resolved]
  - Peripheral swelling [Recovered/Resolved]
  - Nocturia [Unknown]
  - Paraesthesia [Unknown]
  - Condition aggravated [Unknown]
  - Condition aggravated [Recovered/Resolved]
  - Chest discomfort [Unknown]
  - Abdominal pain lower [Recovered/Resolved]
  - Atrial fibrillation [Recovered/Resolved]
  - Therapeutic product effect delayed [Recovered/Resolved]

NARRATIVE: CASE EVENT DATE: 202001
